FAERS Safety Report 14945800 (Version 1)
Quarter: 2018Q2

REPORT INFORMATION
  Report Type: Spontaneous
  Country: CZ (occurrence: CZ)
  Receive Date: 20180529
  Receipt Date: 20180529
  Transmission Date: 20180711
  Serious: Yes (Hospitalization, Other)
  Sender: FDA-Public Use
  Company Number: CZ-ACCORD-067714

PATIENT
  Sex: Male

DRUGS (2)
  1. GEMCITABINE/GEMCITABINE HYDROCHLORIDE [Suspect]
     Active Substance: GEMCITABINE\GEMCITABINE HYDROCHLORIDE
     Indication: ADENOCARCINOMA PANCREAS
  2. NAB-PACLITAXEL [Suspect]
     Active Substance: PACLITAXEL
     Indication: ADENOCARCINOMA PANCREAS

REACTIONS (12)
  - Metastases to bone [None]
  - Metastases to lymph nodes [None]
  - Neutropenia [Unknown]
  - Renal failure [Unknown]
  - Metastases to liver [None]
  - Dehydration [Unknown]
  - Alopecia [Unknown]
  - Cardiac failure [Unknown]
  - Metastases to lung [None]
  - Pneumonia [Unknown]
  - Bone marrow toxicity [Unknown]
  - Metastases to spine [None]

NARRATIVE: CASE EVENT DATE: 201711
